FAERS Safety Report 7255385-8 (Version None)
Quarter: 2011Q1

REPORT INFORMATION
  Report Type: 
  Country: None (occurrence: None)
  Receive Date: 20110129
  Receipt Date: 20100302
  Transmission Date: 20110831
  Serious: No
  Sender: FDA-Public Use
  Company Number: US-ABBOTT-10P-163-0630061-00

PATIENT
  Sex: Female
  Weight: 95.34 kg

DRUGS (9)
  1. MULTIPLE PAIN KILLERS [Concomitant]
     Indication: BACK PAIN
  2. 6MP  MERCAPETOPURINE [Concomitant]
     Indication: COLITIS ULCERATIVE
     Dosage: 1 1/2 TAB PER DAY
     Route: 048
  3. LOMATIL [Concomitant]
     Indication: DIARRHOEA
     Dosage: 1 PILL AFTER EACH STOOL PRN
  4. DEPAKOTE [Concomitant]
     Indication: EPILEPSY
     Route: 048
  5. SULFASALAZINE [Concomitant]
     Indication: COLITIS ULCERATIVE
  6. HUMIRA [Suspect]
     Indication: COLITIS ULCERATIVE
     Route: 058
     Dates: start: 20091001, end: 20091226
  7. FOLIC ACID [Concomitant]
     Indication: VITAMIN SUPPLEMENTATION
     Route: 048
  8. LOVASTATIN [Concomitant]
     Indication: BLOOD CHOLESTEROL INCREASED
     Route: 048
  9. MULTIPLE PAIN KILLERS [Concomitant]
     Indication: COLITIS ULCERATIVE

REACTIONS (2)
  - MUSCLE SPASMS [None]
  - HAEMORRHAGE [None]
